FAERS Safety Report 19388274 (Version 1)
Quarter: 2021Q2

REPORT INFORMATION
  Report Type: Spontaneous
  Country: US (occurrence: US)
  Receive Date: 20210607
  Receipt Date: 20210607
  Transmission Date: 20210717
  Serious: No
  Sender: FDA-Public Use
  Company Number: None

PATIENT
  Age: 33 Year
  Sex: Female
  Weight: 57.15 kg

DRUGS (22)
  1. SPIRONOLACTONE. [Concomitant]
     Active Substance: SPIRONOLACTONE
  2. DEPO?PROVERA [Concomitant]
     Active Substance: MEDROXYPROGESTERONE ACETATE
  3. PRAZOSIN. [Concomitant]
     Active Substance: PRAZOSIN
  4. DIGESTIVE ENZYMES [Concomitant]
     Active Substance: UNSPECIFIED INGREDIENT
  5. SINGULAIR [Concomitant]
     Active Substance: MONTELUKAST SODIUM
  6. TRETINOIN. [Concomitant]
     Active Substance: TRETINOIN
  7. CLINDAMYCIN PHOSPHATE LOTION 1% [Concomitant]
  8. CLONAZEPAM. [Concomitant]
     Active Substance: CLONAZEPAM
  9. MAGNESIUM [Concomitant]
     Active Substance: MAGNESIUM
  10. CBD [Concomitant]
     Active Substance: CANNABIDIOL
  11. PROBIOTICS [Concomitant]
     Active Substance: PROBIOTICS NOS
  12. STOOL SOFTENER (DOCUSATE) [Concomitant]
     Active Substance: DOCUSATE
  13. SINGULAIR [Suspect]
     Active Substance: MONTELUKAST SODIUM
     Indication: MULTIPLE ALLERGIES
     Dosage: ??
     Route: 048
     Dates: start: 20210419, end: 20210605
  14. BUSPAR [Concomitant]
     Active Substance: BUSPIRONE HYDROCHLORIDE
  15. FLONASE SPRAY [Concomitant]
  16. VITAMIN D [Concomitant]
     Active Substance: VITAMIN D NOS
  17. ARMODANFINIL [Concomitant]
  18. TOPAMAX [Concomitant]
     Active Substance: TOPIRAMATE
  19. CLARITIN [Concomitant]
     Active Substance: LORATADINE
  20. RITALIN [Concomitant]
     Active Substance: METHYLPHENIDATE HYDROCHLORIDE
  21. LAMICTAL [Concomitant]
     Active Substance: LAMOTRIGINE
  22. VITAMIN B COMPLEX [Concomitant]
     Active Substance: CYANOCOBALAMIN\DEXPANTHENOL\NIACINAMIDE\PYRIDOXINE HYDROCHLORIDE\RIBOFLAVIN 5^-PHOSPHATE SODIUM\THIAMINE HYDROCHLORIDE\VITAMIN B COMPLEX

REACTIONS (8)
  - Agitation [None]
  - Anxiety [None]
  - Suicidal ideation [None]
  - Obsessive-compulsive personality disorder [None]
  - Hostility [None]
  - Depression [None]
  - Drug ineffective [None]
  - Irritability [None]

NARRATIVE: CASE EVENT DATE: 20210419
